FAERS Safety Report 18179752 (Version 20)
Quarter: 2021Q2

REPORT INFORMATION
  Report Type: Report from Study
  Country: CO (occurrence: CO)
  Receive Date: 20200821
  Receipt Date: 20210527
  Transmission Date: 20210717
  Serious: Yes (Life-Threatening, Hospitalization)
  Sender: FDA-Public Use
  Company Number: NVSC2020CO228578

PATIENT
  Age: 24 Year
  Sex: Female
  Weight: 80 kg

DRUGS (22)
  1. REVOLADE [Suspect]
     Active Substance: ELTROMBOPAG OLAMINE
     Dosage: 100 MG, QD (TABLET OF 50 MG)
     Route: 048
  2. OMEPRAZOLE. [Concomitant]
     Active Substance: OMEPRAZOLE
     Dosage: UNK UNK, QD
     Route: 048
     Dates: start: 202009
  3. TRIMETHOPRIM. [Concomitant]
     Active Substance: TRIMETHOPRIM
     Indication: INFECTION
     Dosage: UNK (EVERY OTHER DAY)
     Route: 065
  4. REVOLADE [Suspect]
     Active Substance: ELTROMBOPAG OLAMINE
     Dosage: 50 MG, QD
     Route: 048
     Dates: start: 202009
  5. REVOLADE [Suspect]
     Active Substance: ELTROMBOPAG OLAMINE
     Dosage: 50 MG, QD
     Route: 048
  6. CYCLOSPORINE. [Suspect]
     Active Substance: CYCLOSPORINE
     Dosage: UNK UNK, QD
     Route: 048
     Dates: start: 202009
  7. REVOLADE [Suspect]
     Active Substance: ELTROMBOPAG OLAMINE
     Dosage: 150 MG, QD
     Route: 048
     Dates: start: 20201015
  8. REVOLADE [Suspect]
     Active Substance: ELTROMBOPAG OLAMINE
     Dosage: 150 MG, QD
     Route: 048
  9. REVOLADE [Suspect]
     Active Substance: ELTROMBOPAG OLAMINE
     Dosage: 50 MG, QD
     Route: 048
     Dates: start: 20210323
  10. FLUCONAZOLE. [Concomitant]
     Active Substance: FLUCONAZOLE
     Indication: INFECTION
     Dosage: UNK (EVERY OTHER DAY)
     Route: 065
  11. REVOLADE [Suspect]
     Active Substance: ELTROMBOPAG OLAMINE
     Dosage: 50 MG, QD
     Route: 048
     Dates: start: 20200730
  12. REVOLADE [Suspect]
     Active Substance: ELTROMBOPAG OLAMINE
     Dosage: 150 MG, QD (3 OF 50 MG) (ONE MONTH AGO)
     Route: 048
     Dates: start: 20200911
  13. ALUMINUM HYDROXIDE. [Concomitant]
     Active Substance: ALUMINUM HYDROXIDE
     Indication: GASTROINTESTINAL DISORDER
     Dosage: 10 IU, Q8H
     Route: 065
     Dates: start: 20200618
  14. CYCLOSPORINE. [Suspect]
     Active Substance: CYCLOSPORINE
     Indication: APLASTIC ANAEMIA
     Dosage: 100 MG, Q12H
     Route: 048
     Dates: start: 20200911
  15. OMEPRAZOLE. [Concomitant]
     Active Substance: OMEPRAZOLE
     Indication: GASTROINTESTINAL DISORDER
     Dosage: 20 MG, Q8H
     Route: 048
     Dates: start: 20201028
  16. REVOLADE [Suspect]
     Active Substance: ELTROMBOPAG OLAMINE
     Indication: APLASTIC ANAEMIA
     Dosage: 150 MG, QD
     Route: 048
     Dates: start: 202007, end: 202101
  17. REVOLADE [Suspect]
     Active Substance: ELTROMBOPAG OLAMINE
     Dosage: 150 MG, QD (TABLETS OF 50 MG)
     Route: 048
     Dates: start: 202009
  18. REVOLADE [Suspect]
     Active Substance: ELTROMBOPAG OLAMINE
     Dosage: 50 MG, Q8H
     Route: 048
  19. ACYCLOVIR. [Concomitant]
     Active Substance: ACYCLOVIR
     Indication: INFECTION
     Dosage: UNK, Q12H
     Route: 065
  20. REVOLADE [Suspect]
     Active Substance: ELTROMBOPAG OLAMINE
     Dosage: 150 MG, QD (3 OF 50 MG) (STARTED: 2 MONTHS AGO)
     Route: 048
  21. CYCLOSPORINE. [Suspect]
     Active Substance: CYCLOSPORINE
     Dosage: UNK UNK, Q8H
     Route: 048
  22. OMEPRAZOLE. [Concomitant]
     Active Substance: OMEPRAZOLE
     Indication: GASTRITIS PROPHYLAXIS
     Dosage: UNK, QD
     Route: 048

REACTIONS (16)
  - Inappropriate schedule of product administration [Unknown]
  - Product use in unapproved indication [Unknown]
  - Bone marrow failure [Unknown]
  - Intermenstrual bleeding [Unknown]
  - Dizziness [Unknown]
  - Decreased immune responsiveness [Unknown]
  - Fatigue [Unknown]
  - Product dose omission issue [Unknown]
  - Anaemia [Unknown]
  - Platelet count decreased [Unknown]
  - Petechiae [Unknown]
  - Heavy menstrual bleeding [Recovered/Resolved]
  - Pallor [Unknown]
  - Asthenia [Unknown]
  - Haemoglobin decreased [Recovering/Resolving]
  - Product supply issue [Unknown]

NARRATIVE: CASE EVENT DATE: 20201019
